FAERS Safety Report 7085186-5 (Version None)
Quarter: 2010Q4

REPORT INFORMATION
  Report Type: 
  Country: None (occurrence: None)
  Receive Date: 20101027
  Receipt Date: 20101015
  Transmission Date: 20110411
  Serious: Yes (Death)
  Sender: FDA-Public Use
  Company Number: MPS1-1000376

PATIENT
  Age: 16 Year
  Sex: Female
  Weight: 21.5 kg

DRUGS (7)
  1. ALDURAZYME [Suspect]
     Indication: MUCOPOLYSACCHARIDOSIS I
     Dosage: 0.58 MG/KG, 1X/W, INTRAVENOUS
     Route: 042
     Dates: start: 20020725, end: 20100809
  2. ALDURAZYME [Suspect]
  3. LASIX (FUROSEMIDE SODIUM) ORAL SOLUTION [Concomitant]
  4. CAPOTEN [Concomitant]
  5. ALDACTONE [Concomitant]
  6. OMEPRAZOLE [Concomitant]
  7. MACROGOL (MACROGOL) [Concomitant]

REACTIONS (3)
  - PULSE ABSENT [None]
  - RESPIRATORY ARREST [None]
  - SUDDEN DEATH [None]
